FAERS Safety Report 22131574 (Version 1)
Quarter: 2023Q1

REPORT INFORMATION
  Report Type: Spontaneous
  Country: US (occurrence: US)
  Receive Date: 20230323
  Receipt Date: 20230323
  Transmission Date: 20230417
  Serious: No
  Sender: FDA-Public Use
  Company Number: US-ALLERGAN-2235513US

PATIENT
  Sex: Female
  Weight: 34.467 kg

DRUGS (8)
  1. LO LOESTRIN FE [Suspect]
     Active Substance: ETHINYL ESTRADIOL\NORETHINDRONE ACETATE
     Indication: Product used for unknown indication
     Dosage: UNK
  2. LEVOTHYROXINE [Concomitant]
     Active Substance: LEVOTHYROXINE
     Indication: Thyroid disorder
     Dosage: 50 ?G, QD
     Route: 048
  3. SINEMET [Concomitant]
     Active Substance: CARBIDOPA\LEVODOPA
     Indication: Dystonia
     Dosage: 0.25 DF, TID
     Route: 048
  4. CALCIUM\CHOLECALCIFEROL\MAGNESIUM [Concomitant]
     Active Substance: CALCIUM\CHOLECALCIFEROL\MAGNESIUM
     Indication: Osteopenia
     Dosage: UNK, QD
     Route: 048
  5. MELATONIN [Concomitant]
     Active Substance: MELATONIN
     Indication: Sleep disorder
     Dosage: 2 MG, QHS
     Route: 048
  6. IRON [Concomitant]
     Active Substance: IRON
     Indication: Blood iron decreased
     Dosage: 65 MG, QD
     Route: 048
  7. METANX [Concomitant]
     Active Substance: LEVOMEFOLATE CALCIUM\METHYLCOBALAMIN\PYRIDOXAL PHOSPHATE ANHYDROUS
     Indication: Dystonia
     Dosage: UNK, BID
     Route: 048
  8. VALERIANA ROOT [Concomitant]
     Indication: Sleep disorder
     Dosage: UNK, QHS
     Route: 048

REACTIONS (2)
  - Anaemia [Unknown]
  - Vaginal haemorrhage [Recovered/Resolved]

NARRATIVE: CASE EVENT DATE: 20220506
